FAERS Safety Report 14138379 (Version 1)
Quarter: 2017Q4

REPORT INFORMATION
  Report Type: Spontaneous
  Country: US (occurrence: US)
  Receive Date: 20171027
  Receipt Date: 20171027
  Transmission Date: 20180321
  Serious: No
  Sender: FDA-Public Use
  Company Number: US-ROCHE-1896617

PATIENT

DRUGS (1)
  1. TAMIFLU [Suspect]
     Active Substance: OSELTAMIVIR PHOSPHATE
     Indication: PRODUCT USED FOR UNKNOWN INDICATION
     Dosage: 30MG CAPSULE AND DISPERSING IT IN MINERAL OIL AS AN ENEMA
     Route: 054

REACTIONS (3)
  - Medication error [Unknown]
  - No adverse event [Unknown]
  - Off label use [Unknown]
